FAERS Safety Report 5493751-1 (Version None)
Quarter: 2007Q4

REPORT INFORMATION
  Report Type: 
  Country: None (occurrence: None)
  Receive Date: 20071023
  Receipt Date: 20071016
  Transmission Date: 20080405
  Serious: Yes (Hospitalization)
  Sender: FDA-Public Use
  Company Number: US-ROXANE LABORATORIES, INC-2007-BP-22780RO

PATIENT
  Age: 58 Year
  Sex: Female

DRUGS (10)
  1. PREDNISONE [Suspect]
     Indication: VASCULITIS
  2. AZATHIOPRINE [Suspect]
     Indication: VASCULITIS
  3. AZATHIOPRINE [Suspect]
  4. HYDROXYCHLOROQUINE SULFATE [Suspect]
     Indication: VASCULITIS
  5. MYCOPHENOLATE MOFETIL [Suspect]
     Indication: VASCULITIS
  6. MYCOPHENOLATE MOFETIL [Suspect]
  7. CORTICOSTEROIDS [Suspect]
     Indication: VASCULITIS
  8. METHYLPREDNISOLONE [Concomitant]
  9. RITUXIMAB [Concomitant]
     Indication: DIFFUSE LARGE B-CELL LYMPHOMA
  10. CYCLOPHOSPHAMIDE [Concomitant]
     Indication: DIFFUSE LARGE B-CELL LYMPHOMA
     Route: 042

REACTIONS (4)
  - CUSHINGOID [None]
  - EPSTEIN-BARR VIRUS INFECTION [None]
  - LYMPHOPROLIFERATIVE DISORDER [None]
  - MUSCULAR WEAKNESS [None]
